FAERS Safety Report 9306318 (Version 1)
Quarter: 2013Q2

REPORT INFORMATION
  Report Type: Spontaneous
  Country: IT (occurrence: IT)
  Receive Date: 20130523
  Receipt Date: 20130523
  Transmission Date: 20140414
  Serious: Yes (Hospitalization)
  Sender: FDA-Public Use
  Company Number: IT-TEVA-406375ISR

PATIENT
  Age: 75 Year
  Sex: Female

DRUGS (3)
  1. AMOXICILLIN [Suspect]
     Indication: BRONCHITIS
     Dosage: 2 GRAM DAILY;
     Route: 048
     Dates: start: 20130416, end: 20130417
  2. EUTIROX [Concomitant]
     Indication: HYPOTHYROIDISM
     Dates: start: 2003
  3. ZESTORETIC [Concomitant]
     Indication: HYPERTENSION
     Dates: start: 2003, end: 2003

REACTIONS (3)
  - Musculoskeletal pain [Recovering/Resolving]
  - Neck pain [Recovering/Resolving]
  - Eczema [Recovering/Resolving]
